FAERS Safety Report 24346602 (Version 1)
Quarter: 2024Q3

REPORT INFORMATION
  Report Type: Spontaneous
  Country: US (occurrence: US)
  Receive Date: 20240921
  Receipt Date: 20240921
  Transmission Date: 20241017
  Serious: No
  Sender: CIPLA
  Company Number: US-CIPLA LTD.-2023US07889

PATIENT

DRUGS (7)
  1. ALENDRONATE [Suspect]
     Active Substance: ALENDRONATE SODIUM
     Indication: Osteoporosis
     Dosage: 70 MILLIGRAM ONCE A WEEK (1 TABLET) (START DATE: AUG-2023 OR SEP-2023)
     Route: 048
     Dates: start: 2023
  2. SIMVASTATIN [Concomitant]
     Active Substance: SIMVASTATIN
     Indication: Blood cholesterol abnormal
     Dosage: 40 MILLIGRAM, QD (1 TABLET AT NIGHT) (STARTED IN 2011 OR 2013)
     Route: 065
  3. LISINOPRIL [Concomitant]
     Active Substance: LISINOPRIL
     Indication: Product used for unknown indication
     Dosage: 10 MILLIGRAM, QD (STARTED 2020 OR 2021)
     Route: 065
  4. CITALOPRAM [Concomitant]
     Active Substance: CITALOPRAM\CITALOPRAM HYDROBROMIDE
     Indication: Product used for unknown indication
     Dosage: 20 MILLIGRAM, QD (1 TABLET A DAY)
     Route: 065
     Dates: start: 2019
  5. ASPIRIN [Concomitant]
     Active Substance: ASPIRIN
     Indication: Blood pressure abnormal
     Dosage: 81 MILLIGRAM, QD (1 TABLET A DAY) (STARTED 2011 OR 2013)
     Route: 065
  6. VITAMIN D3 [Concomitant]
     Active Substance: CHOLECALCIFEROL
     Indication: Vitamin supplementation
     Dosage: 50 MILLIGRAM, QD (ONE A DAY)
     Route: 065
     Dates: start: 2020
  7. ZINC [Concomitant]
     Active Substance: ZINC
     Indication: Immune system disorder
     Dosage: 50 MILLIGRAM, PRN (AS NEEDED)
     Route: 065

REACTIONS (1)
  - Product dose omission in error [Unknown]

NARRATIVE: CASE EVENT DATE: 20231203
